FAERS Safety Report 21799807 (Version 1)
Quarter: 2022Q4

REPORT INFORMATION
  Report Type: Spontaneous
  Country: US (occurrence: None)
  Receive Date: 20221229
  Receipt Date: 20221229
  Transmission Date: 20230112
  Serious: Yes (Death)
  Sender: FDA-Public Use
  Company Number: None

PATIENT
  Age: 89 Year
  Sex: Male
  Weight: 65.77 kg

DRUGS (8)
  1. DEFERASIROX [Suspect]
     Active Substance: DEFERASIROX
     Indication: Myelodysplastic syndrome
     Dosage: FREQUENCY : DAILY;?
     Route: 048
  2. ALLOPURINOL [Concomitant]
     Active Substance: ALLOPURINOL
  3. BENAZEPRIL [Concomitant]
  4. CALCIUM [Concomitant]
     Active Substance: CALCIUM
  5. FLOMAX [Concomitant]
  6. HYDROCODONE-IBUPROFEN [Concomitant]
  7. LEVOTHYROXINE [Concomitant]
  8. ROSUVASTATIN [Concomitant]

REACTIONS (1)
  - Death [None]
